FAERS Safety Report 12060060 (Version 1)
Quarter: 2016Q1

REPORT INFORMATION
  Report Type: Spontaneous
  Country: FR (occurrence: FR)
  Receive Date: 20160210
  Receipt Date: 20160210
  Transmission Date: 20160526
  Serious: Yes (Other)
  Sender: FDA-Public Use
  Company Number: PHHY2016FR016540

PATIENT
  Age: 76 Year
  Sex: Male

DRUGS (3)
  1. VANCOMYCIN SANDOZ [Suspect]
     Active Substance: VANCOMYCIN
     Indication: OSTEITIS
     Dosage: 460 MG, QD
     Route: 042
     Dates: start: 20150810, end: 20150814
  2. OFLOXCIN [Suspect]
     Active Substance: OFLOXACIN
     Indication: OSTEITIS
     Dosage: 1 DF, QD
     Route: 042
     Dates: start: 20150731, end: 20150814
  3. RIFADINE [Suspect]
     Active Substance: RIFAMPIN
     Indication: PRODUCT USED FOR UNKNOWN INDICATION
     Route: 042
     Dates: start: 20150731, end: 20150810

REACTIONS (1)
  - Purpura [Recovering/Resolving]

NARRATIVE: CASE EVENT DATE: 201508
